FAERS Safety Report 20501414 (Version 1)
Quarter: 2022Q1

REPORT INFORMATION
  Report Type: Spontaneous
  Country: CN (occurrence: CN)
  Receive Date: 20220222
  Receipt Date: 20220222
  Transmission Date: 20220424
  Serious: Yes (Hospitalization)
  Sender: FDA-Public Use
  Company Number: CN-PFIZER INC-202200248194

PATIENT
  Age: 42 Year
  Sex: Female
  Weight: 55 kg

DRUGS (5)
  1. SOLU-MEDROL [Suspect]
     Active Substance: METHYLPREDNISOLONE SODIUM SUCCINATE
     Indication: Urticaria
     Dosage: 40 MG, 1X/DAY
     Route: 041
     Dates: start: 20220131, end: 20220203
  2. EBASTINE [Concomitant]
     Active Substance: EBASTINE
     Indication: Urticaria
     Dosage: 20 MG, 1X/DAY
     Route: 048
     Dates: start: 20220118, end: 20220209
  3. HERBALS [Concomitant]
     Active Substance: HERBALS
     Indication: Urticaria
     Dosage: 20 MG, 2X/DAY
     Route: 048
     Dates: start: 20220118, end: 20220208
  4. DEXAMETHASONE [Concomitant]
     Active Substance: DEXAMETHASONE
     Indication: Urticaria
     Dosage: 10 MG
     Route: 041
     Dates: start: 20220124, end: 20220124
  5. DEXAMETHASONE [Concomitant]
     Active Substance: DEXAMETHASONE
     Dosage: 10 MG, 1X/DAY
     Route: 041
     Dates: start: 20220127, end: 20220130

REACTIONS (5)
  - Abdominal discomfort [Recovering/Resolving]
  - Hypertension [Recovering/Resolving]
  - Hepatic function abnormal [Recovering/Resolving]
  - Headache [Not Recovered/Not Resolved]
  - Vision blurred [Recovering/Resolving]

NARRATIVE: CASE EVENT DATE: 20220206
